FAERS Safety Report 4677535-X (Version None)
Quarter: 2005Q2

REPORT INFORMATION
  Report Type: 
  Country: None (occurrence: None)
  Receive Date: 20050526
  Receipt Date: 20050526
  Transmission Date: 20051028
  Serious: Yes (Death)
  Sender: FDA-Public Use
  Company Number: None

PATIENT
  Age: 78 Year
  Sex: Female
  Weight: 63.5036 kg

DRUGS (4)
  1. PROCRIT [Suspect]
     Indication: ANAEMIA
     Dosage: 10,000 UNITS   NOW    SUBCUTANEO
     Route: 058
     Dates: start: 20050429, end: 20050429
  2. PROCRIT [Suspect]
     Indication: RENAL FAILURE CHRONIC
     Dosage: 10,000 UNITS   NOW    SUBCUTANEO
     Route: 058
     Dates: start: 20050429, end: 20050429
  3. MORPHINE [Concomitant]
  4. NAROPIN [Concomitant]

REACTIONS (2)
  - CARDIO-RESPIRATORY ARREST [None]
  - POST PROCEDURAL COMPLICATION [None]
